FAERS Safety Report 18399109 (Version 1)
Quarter: 2020Q4

REPORT INFORMATION
  Report Type: Spontaneous
  Country: US (occurrence: US)
  Receive Date: 20201019
  Receipt Date: 20201019
  Transmission Date: 20210114
  Serious: Yes (Hospitalization)
  Sender: FDA-Public Use
  Company Number: US-PFIZER INC-2020397032

PATIENT
  Age: 72 Year
  Sex: Female

DRUGS (2)
  1. SOMAVERT [Suspect]
     Active Substance: PEGVISOMANT
     Indication: ACROMEGALY
     Dosage: 1 TO 10 MG INJECTION, DAILY (AS REPORTED)
     Dates: start: 2020, end: 202009
  2. SOMAVERT [Suspect]
     Active Substance: PEGVISOMANT
     Dosage: 1 TO 10 MG INJECTION, DAILY (AS REPORTED)
     Dates: start: 2020

REACTIONS (2)
  - Off label use [Unknown]
  - Headache [Recovered/Resolved]

NARRATIVE: CASE EVENT DATE: 2020
